FAERS Safety Report 20751213 (Version 2)
Quarter: 2022Q3

REPORT INFORMATION
  Report Type: Spontaneous
  Country: US (occurrence: US)
  Receive Date: 20220426
  Receipt Date: 20220825
  Transmission Date: 20221026
  Serious: No
  Sender: FDA-Public Use
  Company Number: US-PFIZER INC-202200322531

PATIENT
  Age: 78 Year
  Sex: Female

DRUGS (1)
  1. IBRANCE [Suspect]
     Active Substance: PALBOCICLIB
     Dosage: 75 MG, TABLET. QUANTITY: 30. DIRECTIONS: TAKE 1 TABLET (75 MG TOTAL) BY MOUTH DAILY
     Route: 048

REACTIONS (1)
  - Abdominal discomfort [Unknown]
